FAERS Safety Report 10956972 (Version 1)
Quarter: 2015Q1

REPORT INFORMATION
  Report Type: Spontaneous
  Country: US (occurrence: None)
  Receive Date: 20150325
  Receipt Date: 20150325
  Transmission Date: 20150721
  Serious: Yes (Disabling, Other)
  Sender: FDA-Public Use
  Company Number: None

PATIENT
  Age: 47 Year
  Sex: Female
  Weight: 74.84 kg

DRUGS (8)
  1. PRINIVIL [Concomitant]
     Active Substance: LISINOPRIL
  2. WATER PILL [Concomitant]
     Active Substance: UNSPECIFIED INGREDIENT
  3. VITAMIN D [Concomitant]
     Active Substance: CHOLECALCIFEROL
  4. PROGEST CREAM [Concomitant]
  5. NATURAL ESTROGEN/ESTRIOL CREAM SMOKY MOUNTAIN NATURALS [Concomitant]
     Active Substance: ESTRIOL
  6. POTASSIUM [Concomitant]
     Active Substance: POTASSIUM
  7. MULTI VITAMIN [Concomitant]
     Active Substance: VITAMINS
  8. CIPROFLOXACIN. [Suspect]
     Active Substance: CIPROFLOXACIN
     Indication: SINUSITIS
     Dosage: ONE TABLET
     Route: 048
     Dates: start: 20150317, end: 20150319

REACTIONS (5)
  - Asthenia [None]
  - Myalgia [None]
  - Depression [None]
  - Feeling abnormal [None]
  - Gait disturbance [None]

NARRATIVE: CASE EVENT DATE: 20150318
